FAERS Safety Report 4751045-3 (Version None)
Quarter: 2005Q3

REPORT INFORMATION
  Report Type: 
  Country: None (occurrence: None)
  Receive Date: 20050824
  Receipt Date: 20050615
  Transmission Date: 20060218
  Serious: Yes (Hospitalization)
  Sender: FDA-Public Use
  Company Number: US-GLAXOSMITHKLINE-A0562789A

PATIENT
  Age: 25 Year
  Sex: Male
  Weight: 77.3 kg

DRUGS (6)
  1. EPZICOM [Suspect]
     Indication: HIV INFECTION
     Dosage: 1TAB TWICE PER DAY
     Route: 048
     Dates: start: 20050523, end: 20050614
  2. RETROVIR [Concomitant]
  3. NORVIR [Concomitant]
  4. BACTRIM [Concomitant]
  5. MEGACE [Concomitant]
  6. ZITHROMAX [Concomitant]

REACTIONS (3)
  - PYREXIA [None]
  - RASH [None]
  - URTICARIA [None]
